FAERS Safety Report 17636542 (Version 1)
Quarter: 2020Q2

REPORT INFORMATION
  Report Type: Spontaneous
  Country: FR (occurrence: FR)
  Receive Date: 20200407
  Receipt Date: 20200407
  Transmission Date: 20200713
  Serious: Yes (Death)
  Sender: FDA-Public Use
  Company Number: FR-TEVA-2020-FR-1219938

PATIENT
  Age: 68 Year
  Sex: Male
  Weight: 58.5 kg

DRUGS (6)
  1. CANDESARTAN CILEXETIL. [Suspect]
     Active Substance: CANDESARTAN CILEXETIL
     Indication: HYPERTENSION
     Dosage: 4 MG
     Route: 048
     Dates: end: 20200316
  2. FLECAINE L.P. 200 MG, GELULE A LIBERATION PROLONGEE [Suspect]
     Active Substance: FLECAINIDE ACETATE
     Indication: ATRIAL FIBRILLATION
     Dosage: 1 DOSAGE FORMS
     Route: 048
     Dates: start: 20200313, end: 20200316
  3. CORDARONE [Suspect]
     Active Substance: AMIODARONE HYDROCHLORIDE
     Indication: ATRIAL FIBRILLATION
     Route: 048
     Dates: end: 20200313
  4. TAHOR [Concomitant]
     Active Substance: ATORVASTATIN CALCIUM
  5. ELIQUIS [Concomitant]
     Active Substance: APIXABAN
  6. BISOPROLOL (HEMIFUMARATE DE) [Suspect]
     Active Substance: BISOPROLOL FUMARATE
     Indication: ATRIAL FIBRILLATION
     Dosage: 2.5 MG
     Route: 048
     Dates: end: 20200316

REACTIONS (1)
  - Cardio-respiratory arrest [Fatal]

NARRATIVE: CASE EVENT DATE: 20200316
